APPROVED DRUG PRODUCT: FRAGMIN
Active Ingredient: DALTEPARIN SODIUM
Strength: 7,500IU/0.3ML (25,000IU/ML)
Dosage Form/Route: INJECTABLE;SUBCUTANEOUS
Application: N020287 | Product #005
Applicant: PFIZER INC
Approved: Apr 4, 2002 | RLD: Yes | RS: No | Type: RX